FAERS Safety Report 10160684 (Version 1)
Quarter: 2014Q2

REPORT INFORMATION
  Report Type: Spontaneous
  Country: US (occurrence: US)
  Receive Date: 20140508
  Receipt Date: 20140508
  Transmission Date: 20141212
  Serious: No
  Sender: FDA-Public Use
  Company Number: US-009507513-2012SP035845

PATIENT
  Sex: Female

DRUGS (1)
  1. CLARITIN [Suspect]
     Indication: EYE ALLERGY
     Dosage: UNK UNK, UNKNOWN
     Route: 048

REACTIONS (1)
  - Overdose [Unknown]
